FAERS Safety Report 18724394 (Version 1)
Quarter: 2021Q1

REPORT INFORMATION
  Report Type: Spontaneous
  Country: US (occurrence: US)
  Receive Date: 20210111
  Receipt Date: 20210111
  Transmission Date: 20210419
  Serious: Yes (Hospitalization)
  Sender: FDA-Public Use
  Company Number: None

PATIENT
  Age: 50 Year
  Sex: Male

DRUGS (1)
  1. CEFEPIME (CEFEPIME HCL 2GM/VIL INJ) [Suspect]
     Active Substance: CEFEPIME HYDROCHLORIDE
     Indication: SEPSIS
     Dosage: ?          OTHER ROUTE:IV?
     Route: 042
     Dates: start: 20201102, end: 20201108

REACTIONS (3)
  - Pruritus [None]
  - Urticaria [None]
  - Eosinophilia [None]

NARRATIVE: CASE EVENT DATE: 20201202
